FAERS Safety Report 18758321 (Version 4)
Quarter: 2021Q2

REPORT INFORMATION
  Report Type: Report from Study
  Country: CO (occurrence: CO)
  Receive Date: 20210119
  Receipt Date: 20210415
  Transmission Date: 20210717
  Serious: Yes (Death, Hospitalization, Other)
  Sender: FDA-Public Use
  Company Number: NVSC2021CO009088

PATIENT
  Age: 70 Year
  Sex: Male
  Weight: 56 kg

DRUGS (4)
  1. TASIGNA [Suspect]
     Active Substance: NILOTINIB
     Dosage: 400 MG, Q12H
     Route: 048
     Dates: start: 20160101
  2. BECLOMETHASONE [Concomitant]
     Active Substance: BECLOMETHASONE
     Indication: PRODUCT USED FOR UNKNOWN INDICATION
     Dosage: UNK
     Route: 055
  3. TASIGNA [Suspect]
     Active Substance: NILOTINIB
     Indication: CHRONIC MYELOID LEUKAEMIA
     Dosage: UNK UNK, QD
     Route: 048
  4. LEVOTHYROXINE. [Concomitant]
     Active Substance: LEVOTHYROXINE
     Indication: THYROID DISORDER
     Dosage: 75 MG
     Route: 048

REACTIONS (13)
  - COVID-19 [Unknown]
  - Death [Fatal]
  - Pulmonary fibrosis [Unknown]
  - Hypertension [Unknown]
  - Wrong dosage form [Unknown]
  - Inappropriate schedule of product administration [Unknown]
  - Pyrexia [Unknown]
  - Mobility decreased [Unknown]
  - Pulmonary hypertension [Unknown]
  - Inguinal hernia [Unknown]
  - Cough [Not Recovered/Not Resolved]
  - Aortic valve incompetence [Unknown]
  - Inflammation [Unknown]

NARRATIVE: CASE EVENT DATE: 202001
